FAERS Safety Report 9269642 (Version 2)
Quarter: 2013Q2

REPORT INFORMATION
  Report Type: Spontaneous
  Country: US (occurrence: US)
  Receive Date: 20130503
  Receipt Date: 20130604
  Transmission Date: 20140414
  Serious: No
  Sender: FDA-Public Use
  Company Number: US-009507513-1305USA001445

PATIENT
  Age: 6 Year
  Sex: Male

DRUGS (3)
  1. CLARITIN CHEWABLE TABLETS [Suspect]
     Indication: RHINORRHOEA
     Dosage: 10 MG, UNKNOWN
     Route: 048
     Dates: start: 201304, end: 201304
  2. CLARITIN CHEWABLE TABLETS [Suspect]
     Indication: SNEEZING
  3. CLARITIN CHEWABLE TABLETS [Suspect]
     Indication: ALLERGY TO ANIMAL

REACTIONS (1)
  - Drug effect decreased [Unknown]
